FAERS Safety Report 5525554-3 (Version None)
Quarter: 2007Q4

REPORT INFORMATION
  Report Type: 
  Country: None (occurrence: None)
  Receive Date: 20071126
  Receipt Date: 20071116
  Transmission Date: 20080405
  Serious: Yes (Hospitalization)
  Sender: FDA-Public Use
  Company Number: B0490011A

PATIENT
  Age: 41 Year
  Sex: Female
  Weight: 33 kg

DRUGS (9)
  1. PAXIL [Suspect]
     Indication: EATING DISORDER
     Dosage: 5740MG PER DAY
     Route: 048
     Dates: end: 20070812
  2. RIZE [Concomitant]
     Indication: EATING DISORDER
     Dosage: 570MG PER DAY
     Route: 048
     Dates: start: 20070812, end: 20070812
  3. VEGETAMIN B [Concomitant]
     Indication: EATING DISORDER
     Route: 048
     Dates: start: 20070812, end: 20070812
  4. DEPAS [Concomitant]
     Indication: EATING DISORDER
     Dosage: 3MG PER DAY
     Route: 048
     Dates: end: 20070812
  5. DOGMATYL [Concomitant]
     Indication: EATING DISORDER
     Dosage: 50MG PER DAY
     Route: 048
     Dates: end: 20070812
  6. CONSTAN [Concomitant]
     Indication: EATING DISORDER
     Dosage: .4MG PER DAY
     Route: 048
     Dates: end: 20070812
  7. REMODULIN [Concomitant]
     Indication: OSTEOPOROSIS
     Dosage: 1MCG PER DAY
     Route: 048
     Dates: end: 20070812
  8. GLAKAY [Concomitant]
     Indication: OSTEOPOROSIS
     Dosage: 45MG PER DAY
     Route: 048
     Dates: end: 20070812
  9. EVISTA [Concomitant]
     Indication: OSTEOPOROSIS
     Dosage: 60MG PER DAY
     Route: 048
     Dates: end: 20070812

REACTIONS (4)
  - ELECTROCARDIOGRAM QT PROLONGED [None]
  - INTENTIONAL OVERDOSE [None]
  - SUICIDE ATTEMPT [None]
  - VENTRICULAR TACHYCARDIA [None]
